FAERS Safety Report 9601680 (Version 1)
Quarter: 2013Q4

REPORT INFORMATION
  Report Type: Spontaneous
  Country: GB (occurrence: None)
  Receive Date: 20131002
  Receipt Date: 20131002
  Transmission Date: 20140711
  Serious: Yes (Hospitalization)
  Sender: FDA-Public Use
  Company Number: 2013SCDP000068

PATIENT
  Age: 45 Year
  Sex: Female

DRUGS (1)
  1. XYLOCAINE [Suspect]
     Indication: TOOTH EXTRACTION
     Route: 004
     Dates: start: 20130913, end: 20130913

REACTIONS (3)
  - Depressed level of consciousness [None]
  - Somnolence [None]
  - Headache [None]
